FAERS Safety Report 17102906 (Version 1)
Quarter: 2019Q4

REPORT INFORMATION
  Report Type: Spontaneous
  Country: US (occurrence: US)
  Receive Date: 20191106
  Receipt Date: 20191106
  Transmission Date: 20200122
  Serious: Yes (Other)
  Sender: FDA-Public Use
  Company Number: None

PATIENT
  Age: 51 Year
  Sex: Female

DRUGS (20)
  1. ALVESCO HFA [Concomitant]
  2. NEPHRO VITE RX [Concomitant]
     Active Substance: ASCORBIC ACID\BIOTIN\CALCIUM PANTOTHENATE\CYANOCOBALAMIN\FOLIC ACID\NIACINAMIDE\PYRIDOXINE HYDROCHLORIDE\RIBOFLAVIN\THIAMINE MONONITRATE
  3. CYCLOBENZAPRINE. [Concomitant]
     Active Substance: CYCLOBENZAPRINE
  4. LORAZEPAM. [Concomitant]
     Active Substance: LORAZEPAM
  5. WARFARIN [Concomitant]
     Active Substance: WARFARIN
  6. RENVELA [Concomitant]
     Active Substance: SEVELAMER CARBONATE
  7. LEVSIN S1 [Concomitant]
  8. MIDODRINE [Concomitant]
     Active Substance: MIDODRINE
  9. OMEPRAZOLE. [Concomitant]
     Active Substance: OMEPRAZOLE
  10. PERCOCET [Concomitant]
     Active Substance: ACETAMINOPHEN\OXYCODONE HYDROCHLORIDE
  11. ATENOLOL. [Concomitant]
     Active Substance: ATENOLOL
  12. NORTIPTYLINE [Concomitant]
     Active Substance: NORTRIPTYLINE
  13. CINACALCET. [Concomitant]
     Active Substance: CINACALCET
  14. OPSUMIT [Suspect]
     Active Substance: MACITENTAN
     Indication: PULMONARY ARTERIAL HYPERTENSION
     Route: 048
     Dates: start: 201701
  15. NARCAN [Concomitant]
     Active Substance: NALOXONE HYDROCHLORIDE
  16. VITAMIN K1 [Concomitant]
     Active Substance: PHYTONADIONE
  17. ACE VAG CREAM [Concomitant]
  18. VELPHORO [Concomitant]
     Active Substance: FERRIC OXYHYDROXIDE
  19. ALBUTEROL NEB SOLN [Concomitant]
  20. ALBUTEROL HFA [Concomitant]
     Active Substance: ALBUTEROL SULFATE

REACTIONS (4)
  - Pain [None]
  - Chills [None]
  - Pyrexia [None]
  - Cellulitis [None]

NARRATIVE: CASE EVENT DATE: 20191019
